FAERS Safety Report 21452735 (Version 1)
Quarter: 2022Q4

REPORT INFORMATION
  Report Type: Other
  Country: CN (occurrence: None)
  Receive Date: 20221013
  Receipt Date: 20221013
  Transmission Date: 20230112
  Serious: Yes (Death)
  Sender: FDA-Public Use
  Company Number: CN-ROCHE-3043741

PATIENT
  Age: 52 Year
  Sex: Female
  Weight: 55 kg

DRUGS (1)
  1. TECENTRIQ [Suspect]
     Active Substance: ATEZOLIZUMAB
     Indication: Product used for unknown indication
     Dosage: 1200MG/20ML/VIAL, INJECTION
     Route: 041
     Dates: start: 20220221

REACTIONS (4)
  - Rash [Recovered/Resolved]
  - Pyrexia [Recovering/Resolving]
  - Paraesthesia [Recovered/Resolved]
  - Death [Fatal]
